FAERS Safety Report 9473783 (Version 1)
Quarter: 2013Q3

REPORT INFORMATION
  Report Type: Spontaneous
  Country: US (occurrence: US)
  Receive Date: 20130823
  Receipt Date: 20130823
  Transmission Date: 20140515
  Serious: No
  Sender: FDA-Public Use
  Company Number: US-BRISTOL-MYERS SQUIBB COMPANY-16978595

PATIENT
  Sex: Female
  Weight: 44.9 kg

DRUGS (8)
  1. SPRYCEL [Suspect]
     Indication: ACUTE LYMPHOCYTIC LEUKAEMIA
     Route: 048
  2. VITAMIN D [Concomitant]
  3. MAGNESIUM [Concomitant]
  4. ZOLOFT [Concomitant]
  5. ACYCLOVIR [Concomitant]
  6. CALCIUM [Concomitant]
  7. LORAZEPAM [Concomitant]
  8. ZOLPIDEM [Concomitant]

REACTIONS (4)
  - Sinusitis [Unknown]
  - Cough [Unknown]
  - Fatigue [Unknown]
  - Nasopharyngitis [Unknown]
